FAERS Safety Report 11972785 (Version 2)
Quarter: 2016Q1

REPORT INFORMATION
  Report Type: Spontaneous
  Country: DE (occurrence: DE)
  Receive Date: 20160128
  Receipt Date: 20160205
  Transmission Date: 20160526
  Serious: Yes (Disabling)
  Sender: FDA-Public Use
  Company Number: DE-ASTRAZENECA-2016SE08165

PATIENT
  Age: 50 Year
  Sex: Female

DRUGS (1)
  1. FORXIGA [Suspect]
     Active Substance: DAPAGLIFLOZIN
     Route: 048
     Dates: start: 20160115

REACTIONS (4)
  - Dizziness [Unknown]
  - Visual acuity reduced [Unknown]
  - Headache [Unknown]
  - Dehydration [Unknown]
